FAERS Safety Report 8519064-9 (Version None)
Quarter: 2012Q2

REPORT INFORMATION
  Report Type: 
  Country: None (occurrence: None)
  Receive Date: 20120406
  Receipt Date: 20090210
  Transmission Date: 20120825
  Serious: Yes (Hospitalization)
  Sender: FDA-Public Use
  Company Number: PHEH2009US01637

PATIENT
  Age: 68 Year
  Sex: Female

DRUGS (1)
  1. NILOTINIB [Suspect]
     Dosage: 400 MG, BID

REACTIONS (4)
  - ABDOMINAL PAIN [None]
  - VOMITING [None]
  - NAUSEA [None]
  - CHILLS [None]
